FAERS Safety Report 12194328 (Version 1)
Quarter: 2016Q1

REPORT INFORMATION
  Report Type: Spontaneous
  Country: US (occurrence: None)
  Receive Date: 20160318
  Receipt Date: 20160318
  Transmission Date: 20160526
  Serious: Yes (Disabling)
  Sender: FDA-Public Use
  Company Number: None

PATIENT
  Age: 54 Year
  Sex: Female
  Weight: 113.4 kg

DRUGS (1)
  1. CLINDAMYCIN 150 [Suspect]
     Active Substance: CLINDAMYCIN\CLINDAMYCIN PHOSPHATE
     Indication: TOOTH ABSCESS
     Dosage: 2 PILLS FOUR TIMES DAILY
     Route: 048
     Dates: start: 20160107, end: 20160121

REACTIONS (2)
  - Diarrhoea [None]
  - Clostridium test positive [None]

NARRATIVE: CASE EVENT DATE: 20160107
